FAERS Safety Report 25754489 (Version 1)
Quarter: 2025Q3

REPORT INFORMATION
  Report Type: Spontaneous
  Country: CN (occurrence: CN)
  Receive Date: 20250903
  Receipt Date: 20250903
  Transmission Date: 20251021
  Serious: Yes (Death, Life-Threatening, Hospitalization, Disabling, Other)
  Sender: JOHNSON AND JOHNSON
  Company Number: CN-JNJFOC-20250833113

PATIENT

DRUGS (1)
  1. AMIVANTAMAB [Suspect]
     Active Substance: AMIVANTAMAB
     Indication: Non-small cell lung cancer
     Route: 065

REACTIONS (76)
  - Death [Fatal]
  - Adverse drug reaction [Unknown]
  - Pneumonitis [Unknown]
  - Pulmonary embolism [Unknown]
  - Thrombocytopenia [Unknown]
  - Febrile neutropenia [Unknown]
  - Hypokalaemia [Unknown]
  - Interstitial lung disease [Unknown]
  - Anaphylactic reaction [Unknown]
  - Deep vein thrombosis [Unknown]
  - Metastases to central nervous system [Unknown]
  - Embolism [Unknown]
  - Anaphylactic shock [Unknown]
  - Pneumothorax [Unknown]
  - Anal ulcer [Unknown]
  - Embolism venous [Unknown]
  - Pneumonia [Unknown]
  - Respiratory failure [Unknown]
  - Sepsis [Unknown]
  - Non-small cell lung cancer [Unknown]
  - Disease progression [Unknown]
  - Infusion related reaction [Unknown]
  - Rash [Unknown]
  - Dyspnoea [Unknown]
  - Paronychia [Unknown]
  - Oxygen saturation decreased [Unknown]
  - Flushing [Unknown]
  - Chest discomfort [Unknown]
  - Dermatitis acneiform [Unknown]
  - Chills [Unknown]
  - Oedema peripheral [Unknown]
  - Stomatitis [Unknown]
  - Skin toxicity [Unknown]
  - Mucosal inflammation [Unknown]
  - Hypoalbuminaemia [Unknown]
  - Acne [Unknown]
  - Tachycardia [Unknown]
  - Folliculitis [Unknown]
  - Skin reaction [Unknown]
  - Cellulitis [Unknown]
  - Skin disorder [Unknown]
  - Oedema [Unknown]
  - Skin infection [Unknown]
  - Scab [Unknown]
  - Bronchospasm [Unknown]
  - Administration related reaction [Unknown]
  - Rash pustular [Unknown]
  - Skin fissures [Unknown]
  - Mouth ulceration [Unknown]
  - Body temperature increased [Unknown]
  - Pyogenic granuloma [Unknown]
  - Generalised oedema [Unknown]
  - Nail toxicity [Unknown]
  - Keratitis [Unknown]
  - Nausea [Unknown]
  - Pyrexia [Unknown]
  - Diarrhoea [Unknown]
  - Vomiting [Unknown]
  - Asthenia [Unknown]
  - Hypersensitivity [Unknown]
  - Hypotension [Unknown]
  - Pain [Unknown]
  - Chest pain [Unknown]
  - Pruritus [Unknown]
  - Back pain [Unknown]
  - Dizziness [Unknown]
  - Hypertension [Unknown]
  - Heart rate increased [Unknown]
  - Pleural effusion [Unknown]
  - COVID-19 [Unknown]
  - Infection [Unknown]
  - Blood pressure increased [Unknown]
  - Erythema [Unknown]
  - Bradycardia [Unknown]
  - Product dose omission issue [Unknown]
  - Off label use [Unknown]
